FAERS Safety Report 21212174 (Version 3)
Quarter: 2022Q4

REPORT INFORMATION
  Report Type: Report from Study
  Country: US (occurrence: US)
  Receive Date: 20220815
  Receipt Date: 20221017
  Transmission Date: 20230113
  Serious: Yes (Death, Hospitalization, Other)
  Sender: FDA-Public Use
  Company Number: US-ASTELLAS-2022US021810

PATIENT
  Age: 69 Year
  Sex: Male

DRUGS (3)
  1. ENZALUTAMIDE [Suspect]
     Active Substance: ENZALUTAMIDE
     Indication: Prostate cancer
     Route: 048
  2. ENZALUTAMIDE [Suspect]
     Active Substance: ENZALUTAMIDE
     Dosage: UNK UNK, EVERY 6 HOURS (4 TIMES DAILY)
     Route: 048
  3. ENZALUTAMIDE [Suspect]
     Active Substance: ENZALUTAMIDE
     Indication: Prostate cancer
     Route: 065

REACTIONS (18)
  - Malignant neoplasm progression [Fatal]
  - Seizure [Unknown]
  - Pain [Unknown]
  - Decreased appetite [Unknown]
  - Balance disorder [Unknown]
  - General physical health deterioration [Unknown]
  - Condition aggravated [Unknown]
  - Gait disturbance [Unknown]
  - Headache [Unknown]
  - Fatigue [Unknown]
  - Nausea [Unknown]
  - Aneurysm [Unknown]
  - Pneumonia [Unknown]
  - Blood urine present [Unknown]
  - Hypertension [Unknown]
  - Drug intolerance [Unknown]
  - Overdose [Unknown]
  - Product use issue [Unknown]

NARRATIVE: CASE EVENT DATE: 20220201
